FAERS Safety Report 18348752 (Version 1)
Quarter: 2020Q4

REPORT INFORMATION
  Report Type: Spontaneous
  Country: TR (occurrence: TR)
  Receive Date: 20201006
  Receipt Date: 20201006
  Transmission Date: 20210114
  Serious: Yes (Death, Other)
  Sender: FDA-Public Use
  Company Number: TR-BAYER-2020-142859

PATIENT
  Age: 58 Year
  Sex: Female
  Weight: 60 kg

DRUGS (2)
  1. CURCUMIN [Concomitant]
     Active Substance: CURCUMIN
     Dosage: UNK
  2. NEXAVAR [Suspect]
     Active Substance: SORAFENIB
     Indication: THYROID CANCER
     Dosage: 800 MG
     Route: 048
     Dates: start: 202005

REACTIONS (11)
  - Abnormal loss of weight [None]
  - Erythema [None]
  - Dyspnoea [Fatal]
  - Pyrexia [Fatal]
  - Eating disorder [None]
  - Headache [Recovering/Resolving]
  - Thyroid cancer [None]
  - Pneumonia aspiration [Fatal]
  - Throat tightness [Recovering/Resolving]
  - Dysphagia [None]
  - Wrong technique in product usage process [None]

NARRATIVE: CASE EVENT DATE: 202006
